FAERS Safety Report 4945070-7 (Version None)
Quarter: 2006Q1

REPORT INFORMATION
  Report Type: 
  Country: None (occurrence: None)
  Receive Date: 20060117
  Receipt Date: 20050514
  Transmission Date: 20060701
  Serious: No
  Sender: FDA-Public Use
  Company Number: FEI2005-1205

PATIENT
  Age: 23 Year
  Sex: Female
  Weight: 74.3899 kg

DRUGS (1)
  1. INTRAUTERINE COPPER CONTRACEPTIVE [Suspect]
     Indication: CONTRACEPTION
     Dosage: INTRA-UTERINE
     Route: 015
     Dates: start: 20030812, end: 20050322

REACTIONS (4)
  - ANORECTAL DISORDER [None]
  - IUCD COMPLICATION [None]
  - IUD MIGRATION [None]
  - UNINTENDED PREGNANCY [None]
